FAERS Safety Report 9059496 (Version 3)
Quarter: 2013Q1

REPORT INFORMATION
  Report Type: Spontaneous
  Country: US (occurrence: US)
  Receive Date: 20130211
  Receipt Date: 20130228
  Transmission Date: 20140127
  Serious: Yes (Hospitalization, Other)
  Sender: FDA-Public Use
  Company Number: US-VERTEX PHARMACEUTICALS INC.-2013-001812

PATIENT
  Age: 48 None
  Sex: Male
  Weight: 95 kg

DRUGS (11)
  1. INCIVEK [Suspect]
     Indication: HEPATITIS C
     Dosage: 750 MG, TID
     Route: 048
     Dates: start: 20121127
  2. PEGASYS [Suspect]
     Indication: HEPATITIS C
     Dosage: 180 ?G, QW
     Route: 058
     Dates: start: 20121127
  3. PEGASYS [Suspect]
     Dosage: 130 ?G, QW
     Route: 058
  4. PEGASYS [Suspect]
     Dosage: 135 ?G, QW
     Route: 058
  5. RIBAVIRIN [Suspect]
     Indication: HEPATITIS C
     Dosage: 600 MG, BID
     Route: 048
     Dates: start: 20121127
  6. RIBAVIRIN [Suspect]
     Dosage: UNK MG, QD
     Route: 048
  7. BUSPIRONE [Concomitant]
     Dosage: 10 MG, TID
  8. MIRTAZAPINE [Concomitant]
     Dosage: 15 MG, QD
     Route: 048
  9. TRAMADOL [Concomitant]
     Indication: PAIN
     Dosage: 50 MG, PRN
  10. SERTRALINE [Concomitant]
     Dosage: 50 MG, QD
  11. ALPRAZOLAM [Concomitant]
     Dosage: 1 MG, PRN

REACTIONS (16)
  - Pneumonia [Recovered/Resolved]
  - Influenza [Recovered/Resolved]
  - Pyrexia [Recovered/Resolved]
  - Lethargy [Not Recovered/Not Resolved]
  - Neutropenia [Unknown]
  - Rash generalised [Recovered/Resolved]
  - Drug dose omission [Recovered/Resolved]
  - Anxiety [Not Recovered/Not Resolved]
  - Fear [Not Recovered/Not Resolved]
  - Nervousness [Not Recovered/Not Resolved]
  - Weight increased [Not Recovered/Not Resolved]
  - Insomnia [Not Recovered/Not Resolved]
  - Dyspnoea [Unknown]
  - Histamine level increased [Unknown]
  - Urticaria [Unknown]
  - Pruritus [Not Recovered/Not Resolved]
